FAERS Safety Report 16081803 (Version 2)
Quarter: 2019Q1

REPORT INFORMATION
  Report Type: Spontaneous
  Country: UA (occurrence: UA)
  Receive Date: 20190316
  Receipt Date: 20190322
  Transmission Date: 20190418
  Serious: Yes (Hospitalization)
  Sender: FDA-Public Use
  Company Number: PHHY2019UA056434

PATIENT
  Age: 60 Year
  Sex: Female

DRUGS (7)
  1. METHYLPREDNISOLONE. [Suspect]
     Active Substance: METHYLPREDNISOLONE
     Indication: MENINGITIS
     Dosage: 1000 MG, UNK
     Route: 065
  2. PHENYTOIN. [Suspect]
     Active Substance: PHENYTOIN
     Indication: PARTIAL SEIZURES
     Route: 065
  3. METHOTREXATE. [Suspect]
     Active Substance: METHOTREXATE
     Indication: RHEUMATOID ARTHRITIS
     Dosage: 10-12.5 MG, QW
     Route: 065
  4. METHYLPREDNISOLONE. [Suspect]
     Active Substance: METHYLPREDNISOLONE
     Dosage: 70 MG, UNK
     Route: 065
  5. HALOPERIDOL. [Suspect]
     Active Substance: HALOPERIDOL
     Indication: ABNORMAL BEHAVIOUR
     Route: 065
  6. METHYLPREDNISOLONE. [Suspect]
     Active Substance: METHYLPREDNISOLONE
     Indication: RHEUMATOID ARTHRITIS
     Dosage: 4-8 MG, QD
     Route: 065
  7. VALPROATE SODIUM. [Suspect]
     Active Substance: VALPROATE SODIUM
     Indication: PARTIAL SEIZURES
     Route: 065

REACTIONS (17)
  - Delirium [Recovering/Resolving]
  - Chills [Recovering/Resolving]
  - Partial seizures [Unknown]
  - Hallucination, visual [Recovering/Resolving]
  - Headache [Recovering/Resolving]
  - Meningitis [Recovering/Resolving]
  - Mania [Recovering/Resolving]
  - Delusion [Recovering/Resolving]
  - Panic disorder [Recovering/Resolving]
  - Drug ineffective [Unknown]
  - Panic attack [Recovering/Resolving]
  - Amnesia [Recovering/Resolving]
  - Photophobia [Recovering/Resolving]
  - Insomnia [Recovering/Resolving]
  - Disturbance in attention [Recovering/Resolving]
  - Disorganised speech [Recovering/Resolving]
  - Influenza [Unknown]
